FAERS Safety Report 14897600 (Version 2)
Quarter: 2018Q2

REPORT INFORMATION
  Report Type: Spontaneous
  Country: US (occurrence: US)
  Receive Date: 20180515
  Receipt Date: 20180525
  Transmission Date: 20180711
  Serious: Yes (Other)
  Sender: FDA-Public Use
  Company Number: US-TEVA-2018-US-893146

PATIENT
  Age: 60 Year
  Sex: Male

DRUGS (1)
  1. FENTANYL. [Suspect]
     Active Substance: FENTANYL
     Indication: PAIN
     Dosage: 100 MICROGRAM DAILY;
     Route: 062

REACTIONS (5)
  - Spinal cord injury [Unknown]
  - Cervical vertebral fracture [Unknown]
  - Withdrawal syndrome [Unknown]
  - Tibia fracture [Unknown]
  - Pain [Unknown]
